FAERS Safety Report 5931414-6 (Version None)
Quarter: 2008Q4

REPORT INFORMATION
  Report Type: 
  Country: None (occurrence: None)
  Receive Date: 20081024
  Receipt Date: 20081024
  Transmission Date: 20090506
  Serious: Yes (Life-Threatening, Hospitalization)
  Sender: FDA-Public Use
  Company Number: None

PATIENT
  Age: 63 Year
  Sex: Female
  Weight: 90 kg

DRUGS (2)
  1. LYRICA [Suspect]
     Indication: DIABETIC NEUROPATHY
     Dates: start: 20081018, end: 20081022
  2. LYRICA [Suspect]
     Indication: PAIN
     Dates: start: 20081018, end: 20081022

REACTIONS (9)
  - AORTIC DISORDER [None]
  - AORTIC STENOSIS [None]
  - BLOOD PRESSURE SYSTOLIC DECREASED [None]
  - COAGULOPATHY [None]
  - OEDEMA PERIPHERAL [None]
  - PAIN IN EXTREMITY [None]
  - PAIN IN JAW [None]
  - RESPIRATORY DISTRESS [None]
  - VENTRICULAR TACHYCARDIA [None]
